FAERS Safety Report 13575250 (Version 1)
Quarter: 2017Q2

REPORT INFORMATION
  Report Type: Spontaneous
  Country: US (occurrence: US)
  Receive Date: 20170523
  Receipt Date: 20170523
  Transmission Date: 20170830
  Serious: Yes (Other)
  Sender: FDA-Public Use
  Company Number: None

PATIENT
  Weight: 9 kg

DRUGS (1)
  1. PROTAMINE SULFATE. [Suspect]
     Active Substance: PROTAMINE SULFATE
     Indication: CARDIAC OPERATION
     Dosage: 50 MG THREE TIMES IV
     Route: 042
     Dates: start: 20170503

REACTIONS (2)
  - Drug ineffective [None]
  - Prescribed overdose [None]

NARRATIVE: CASE EVENT DATE: 20170503
